FAERS Safety Report 4801470-7 (Version None)
Quarter: 2005Q4

REPORT INFORMATION
  Report Type: 
  Country: None (occurrence: None)
  Receive Date: 20051018
  Receipt Date: 20051006
  Transmission Date: 20060501
  Serious: Yes (Other)
  Sender: FDA-Public Use
  Company Number: US-JNJFOC-20051001393

PATIENT
  Sex: Female
  Weight: 65.77 kg

DRUGS (23)
  1. INFLIXIMAB [Suspect]
     Indication: RHEUMATOID ARTHRITIS
     Route: 042
  2. AMITRIPTYLINE HCL [Concomitant]
  3. CALTRATE [Concomitant]
  4. CLINORIL [Concomitant]
  5. FOLIC ACID [Concomitant]
  6. IMODIUM [Concomitant]
     Dosage: 2 IN 1 DAY, AS NEEDED
  7. LACTAID [Concomitant]
  8. PENTASA [Concomitant]
  9. PEPCID [Concomitant]
  10. SINEMET [Concomitant]
  11. SINEMET [Concomitant]
  12. METHOTREXATE [Concomitant]
  13. NEXIUM [Concomitant]
  14. TRICOR [Concomitant]
  15. ZOMIG [Concomitant]
  16. MULTI-VITAMIN [Concomitant]
  17. MULTI-VITAMIN [Concomitant]
  18. MULTI-VITAMIN [Concomitant]
  19. MULTI-VITAMIN [Concomitant]
  20. MULTI-VITAMIN [Concomitant]
  21. MULTI-VITAMIN [Concomitant]
  22. MULTI-VITAMIN [Concomitant]
  23. MULTI-VITAMIN [Concomitant]

REACTIONS (1)
  - SKIN CANCER [None]
